FAERS Safety Report 12293421 (Version 1)
Quarter: 2016Q2

REPORT INFORMATION
  Report Type: Spontaneous
  Country: US (occurrence: US)
  Receive Date: 20160421
  Receipt Date: 20160421
  Transmission Date: 20160815
  Serious: No
  Sender: FDA-Public Use
  Company Number: US-GE HEALTHCARE MEDICAL DIAGNOSTICS-TTSC-PR-1512L-0009

PATIENT
  Sex: Male

DRUGS (3)
  1. TECHNETIUM TC99M TSC [Suspect]
     Active Substance: TECHNETIUM TC-99M SULFUR COLLOID
     Indication: LYMPHADENOPATHY
     Dosage: DOSE NOT REPORTED
     Route: 065
  2. TECHNETIUM TC99M TSC [Suspect]
     Active Substance: TECHNETIUM TC-99M SULFUR COLLOID
     Indication: PROSTATE CANCER
  3. TECHNETIUM TC99M TSC [Suspect]
     Active Substance: TECHNETIUM TC-99M SULFUR COLLOID
     Indication: DIAGNOSTIC PROCEDURE

REACTIONS (1)
  - Prostatic pain [Unknown]
